FAERS Safety Report 6890691-8 (Version None)
Quarter: 2010Q3

REPORT INFORMATION
  Report Type: 
  Country: None (occurrence: None)
  Receive Date: 20100731
  Receipt Date: 20090209
  Transmission Date: 20110219
  Serious: No
  Sender: FDA-Public Use
  Company Number: US-PFIZER INC-2006033959

PATIENT
  Sex: Female
  Weight: 48.526 kg

DRUGS (7)
  1. LIPITOR [Suspect]
     Indication: BLOOD CHOLESTEROL INCREASED
     Dosage: 10 MG, 1X/DAY
     Route: 048
     Dates: start: 20060305
  2. LIPITOR [Suspect]
     Indication: BLOOD TRIGLYCERIDES INCREASED
  3. PULMICORT [Concomitant]
     Route: 055
  4. CENTRUM [Concomitant]
  5. XANAX [Concomitant]
  6. ACETYLSALICYLIC ACID SRT [Concomitant]
  7. SENNA [Concomitant]

REACTIONS (10)
  - ACNE [None]
  - DIZZINESS [None]
  - DRUG ADMINISTRATION ERROR [None]
  - ERYTHEMA [None]
  - FATIGUE [None]
  - FEELING ABNORMAL [None]
  - HEADACHE [None]
  - HYPERHIDROSIS [None]
  - INSOMNIA [None]
  - URTICARIA [None]
